FAERS Safety Report 4697731-5 (Version None)
Quarter: 2005Q2

REPORT INFORMATION
  Report Type: 
  Country: None (occurrence: None)
  Receive Date: 20050621
  Receipt Date: 20050621
  Transmission Date: 20051028
  Serious: Yes (Disabling)
  Sender: FDA-Public Use
  Company Number: None

PATIENT
  Sex: Female
  Weight: 60 kg

DRUGS (1)
  1. AREDIA [Suspect]
     Indication: OSTEOPOROSIS
     Dosage: 60 MG.  Q 4 MONTHS   INTRAVENOUS
     Route: 042
     Dates: start: 20030924, end: 20040510

REACTIONS (2)
  - ARTHRALGIA [None]
  - PAIN IN EXTREMITY [None]
